FAERS Safety Report 5847142-1 (Version None)
Quarter: 2008Q3

REPORT INFORMATION
  Report Type: 
  Country: None (occurrence: None)
  Receive Date: 20080731
  Receipt Date: 20080422
  Transmission Date: 20090109
  Serious: No
  Sender: FDA-Public Use
  Company Number: US200804005819

PATIENT
  Age: 59 Year
  Sex: Female
  Weight: 62.1 kg

DRUGS (4)
  1. BYETTA [Suspect]
     Indication: TYPE 2 DIABETES MELLITUS
     Dosage: 5 UG, 2/D, SUBCUTANEOUS; 10 UG, 2/D, SUBCUTANEOUS
     Route: 058
     Dates: start: 20060401, end: 20060501
  2. BYETTA [Suspect]
     Indication: TYPE 2 DIABETES MELLITUS
     Dosage: 5 UG, 2/D, SUBCUTANEOUS; 10 UG, 2/D, SUBCUTANEOUS
     Route: 058
     Dates: start: 20060501
  3. GLIMEPIRIDE [Concomitant]
  4. ACTOS [Concomitant]

REACTIONS (9)
  - BLOOD GLUCOSE DECREASED [None]
  - BLOOD GLUCOSE INCREASED [None]
  - LACRIMATION INCREASED [None]
  - MALAISE [None]
  - NAUSEA [None]
  - NERVOUSNESS [None]
  - PARANASAL SINUS HYPERSECRETION [None]
  - RHINORRHOEA [None]
  - SOMNOLENCE [None]
